FAERS Safety Report 19982993 (Version 1)
Quarter: 2021Q4

REPORT INFORMATION
  Report Type: Spontaneous
  Country: US (occurrence: US)
  Receive Date: 20211021
  Receipt Date: 20211021
  Transmission Date: 20220303
  Serious: No
  Sender: FDA-Public Use
  Company Number: US-JNJFOC-20211033968

PATIENT
  Sex: Male
  Weight: 106.5 kg

DRUGS (7)
  1. DURAGESIC [Suspect]
     Active Substance: FENTANYL
     Indication: Product used for unknown indication
     Route: 062
  2. BACLOFEN [Concomitant]
     Active Substance: BACLOFEN
  3. MORNIFLUMATE [Concomitant]
     Active Substance: MORNIFLUMATE
  4. GABAPENTIN [Concomitant]
     Active Substance: GABAPENTIN
  5. MIRALAX [Concomitant]
     Active Substance: POLYETHYLENE GLYCOL 3350
  6. SENNA-S [DOCUSATE SODIUM;SENNOSIDE A+B] [Concomitant]
  7. VITAMIN D3 [Concomitant]
     Active Substance: CHOLECALCIFEROL

REACTIONS (1)
  - Anxiety [Unknown]
